FAERS Safety Report 8074843-X (Version None)
Quarter: 2012Q1

REPORT INFORMATION
  Report Type: 
  Country: None (occurrence: None)
  Receive Date: 20120126
  Receipt Date: 20120119
  Transmission Date: 20120608
  Serious: Yes (Other)
  Sender: FDA-Public Use
  Company Number: BR-ASTRAZENECA-2012SE04314

PATIENT
  Age: 64 Year
  Sex: Male
  Weight: 54.5 kg

DRUGS (6)
  1. GALVUS MET [Concomitant]
     Indication: DIABETES MELLITUS
  2. CRESTOR [Suspect]
     Route: 048
     Dates: start: 20120114
  3. BRILINTA [Suspect]
     Route: 048
     Dates: start: 20120114
  4. SIMVASTATIN [Concomitant]
  5. DIOVAN [Concomitant]
     Indication: HYPERTENSION
  6. CLOPIDOGREL [Concomitant]

REACTIONS (2)
  - HAEMOPTYSIS [None]
  - HYPOAESTHESIA [None]
